FAERS Safety Report 9791325 (Version 4)
Quarter: 2014Q3

REPORT INFORMATION
  Report Type: Spontaneous
  Country: SE (occurrence: SE)
  Receive Date: 20140101
  Receipt Date: 20140811
  Transmission Date: 20150326
  Serious: Yes (Other)
  Sender: FDA-Public Use
  Company Number: SE-AMGEN-SWESP2013091190

PATIENT
  Age: 66 Year
  Sex: Male

DRUGS (15)
  1. IMOVANE [Concomitant]
     Active Substance: ZOPICLONE
     Dosage: 5 MG, UNK
  2. ROBINUL [Concomitant]
     Active Substance: GLYCOPYRROLATE
     Dosage: 0.2 MG/ML, UNK
  3. CILAXORAL [Concomitant]
     Dosage: 7.5 MG/ML, UNK
  4. CALCICHEW D3 FORTE [Concomitant]
     Active Substance: CALCIUM\CHOLECALCIFEROL
     Dosage: 500 MG400 IU , UNK
  5. FENTANYL RATIOPHARM [Concomitant]
     Dosage: 100 MUG, QH
     Route: 062
  6. ONDANSETRON [Concomitant]
     Active Substance: ONDANSETRON
     Dosage: 8 MG, UNK
     Route: 048
  7. HALDOL [Concomitant]
     Active Substance: HALOPERIDOL
     Dosage: 5 MG/ML, UNK
  8. MIDAZOLAM ACCORD [Concomitant]
     Dosage: 5 MG/ML, UNK
  9. LOPERAMID MYLAN [Concomitant]
     Dosage: 2 MG, UNK
  10. MORFIN MEDA [Concomitant]
     Dosage: SOLUTION FOR INJECTION
  11. XGEVA [Suspect]
     Active Substance: DENOSUMAB
     Indication: METASTASES TO BONE
     Dosage: 120 MG, UNK
     Route: 065
     Dates: start: 20121129
  12. OMEPRAZOL ACTAVIS [Concomitant]
     Active Substance: OMEPRAZOLE
     Dosage: 20 MG, UNK, ENTERIC COATED
  13. LAXIDO APELSIN [Concomitant]
  14. MORFIN MEDA [Concomitant]
     Dosage: 20 MG, UNK
  15. ACETYLCYSTEIN MEDA [Concomitant]
     Dosage: 200 MG, UNK

REACTIONS (1)
  - Osteonecrosis of jaw [Not Recovered/Not Resolved]

NARRATIVE: CASE EVENT DATE: 20131129
